FAERS Safety Report 11129390 (Version 3)
Quarter: 2015Q2

REPORT INFORMATION
  Report Type: Spontaneous
  Country: US (occurrence: US)
  Receive Date: 20150521
  Receipt Date: 20150618
  Transmission Date: 20150821
  Serious: Yes (Hospitalization, Other)
  Sender: FDA-Public Use
  Company Number: US-009507513-1201USA00991

PATIENT
  Sex: Female
  Weight: 47.62 kg

DRUGS (5)
  1. FOSAMAX [Suspect]
     Active Substance: ALENDRONATE SODIUM
     Route: 048
  2. FOSAMAX [Suspect]
     Active Substance: ALENDRONATE SODIUM
     Indication: BONE DENSITY DECREASED
     Dosage: 70 MG, QW
     Route: 048
     Dates: start: 20040202, end: 20071226
  3. FOSAMAX [Suspect]
     Active Substance: ALENDRONATE SODIUM
     Dosage: 35 MG, QW
     Route: 048
     Dates: start: 20040409, end: 20061220
  4. VITAMIN D [Concomitant]
     Active Substance: CHOLECALCIFEROL
     Dosage: 1000 MG, QD
     Dates: start: 2002
  5. ALENDRONATE SODIUM. [Suspect]
     Active Substance: ALENDRONATE SODIUM
     Indication: BONE DENSITY DECREASED
     Dosage: 70 MG, QW
     Route: 048
     Dates: start: 20090104

REACTIONS (20)
  - Blood glucose increased [Unknown]
  - Osteoporosis [Unknown]
  - Bone pain [Unknown]
  - Blood potassium decreased [Unknown]
  - Rheumatoid arthritis [Unknown]
  - Loss of consciousness [Unknown]
  - Arthritis [Unknown]
  - Pain in extremity [Unknown]
  - Femur fracture [Recovered/Resolved]
  - Diabetic retinopathy [Unknown]
  - Blood caffeine [Unknown]
  - Diabetic neuropathy [Unknown]
  - Ovarian failure [Unknown]
  - Intramedullary rod insertion [Unknown]
  - Anaemia [Unknown]
  - Bursitis [Unknown]
  - Sinus operation [Unknown]
  - Blood albumin decreased [Unknown]
  - Hypertension [Unknown]
  - Diabetes mellitus [Unknown]

NARRATIVE: CASE EVENT DATE: 200909
